FAERS Safety Report 24769957 (Version 2)
Quarter: 2025Q1

REPORT INFORMATION
  Report Type: Report from Study
  Country: IN (occurrence: IN)
  Receive Date: 20241224
  Receipt Date: 20250121
  Transmission Date: 20250409
  Serious: Yes (Hospitalization)
  Sender: ROCHE
  Company Number: IN-ROCHE-10000161544

PATIENT
  Age: 55 Year
  Sex: Female

DRUGS (1)
  1. PHESGO [Suspect]
     Active Substance: HYALURONIDASE-ZZXF\PERTUZUMAB\TRASTUZUMAB
     Indication: Breast cancer
     Route: 058
     Dates: start: 20240823

REACTIONS (8)
  - Pyrexia [Unknown]
  - Cough [Unknown]
  - Nasopharyngitis [Unknown]
  - Oxygen saturation decreased [Unknown]
  - Full blood count abnormal [Unknown]
  - Haemoglobin decreased [Unknown]
  - Malaise [Unknown]
  - Mastectomy [Unknown]

NARRATIVE: CASE EVENT DATE: 20250116
